FAERS Safety Report 6057242-1 (Version None)
Quarter: 2009Q1

REPORT INFORMATION
  Report Type: 
  Country: None (occurrence: None)
  Receive Date: 20090129
  Receipt Date: 20080519
  Transmission Date: 20090719
  Serious: No
  Sender: FDA-Public Use
  Company Number: A0729735A

PATIENT
  Age: 50 Year
  Sex: Male

DRUGS (5)
  1. WELLBUTRIN [Suspect]
     Indication: DRUG USE FOR UNKNOWN INDICATION
     Route: 048
     Dates: start: 20070901, end: 20080301
  2. PROVIGIL [Suspect]
     Indication: DEPRESSION
     Dosage: 200MG AS REQUIRED
     Route: 048
     Dates: start: 20070101
  3. PAXIL [Concomitant]
     Dates: start: 20071001
  4. LIPITOR [Concomitant]
  5. ALLOPURINOL [Concomitant]

REACTIONS (1)
  - RASH [None]
